FAERS Safety Report 21078899 (Version 1)
Quarter: 2022Q3

REPORT INFORMATION
  Report Type: Spontaneous
  Country: US (occurrence: US)
  Receive Date: 20220713
  Receipt Date: 20220713
  Transmission Date: 20221026
  Serious: No
  Sender: FDA-Public Use
  Company Number: US-SA-SAC20220712001082

PATIENT
  Age: 50 Year
  Sex: Female

DRUGS (3)
  1. DUPIXENT [Suspect]
     Active Substance: DUPILUMAB
     Indication: Dermatitis atopic
     Dosage: 300 MG, QOW
     Route: 058
  2. SELENIUM SULFIDE [Concomitant]
     Active Substance: SELENIUM SULFIDE
  3. TRETINOIN [Concomitant]
     Active Substance: TRETINOIN

REACTIONS (3)
  - Insomnia [Unknown]
  - Pruritus [Unknown]
  - Rash [Unknown]
